FAERS Safety Report 17110153 (Version 1)
Quarter: 2019Q4

REPORT INFORMATION
  Report Type: Spontaneous
  Country: CA (occurrence: CA)
  Receive Date: 20191204
  Receipt Date: 20191204
  Transmission Date: 20200122
  Serious: Yes (Other)
  Sender: FDA-Public Use
  Company Number: CA-PFIZER INC-2019517987

PATIENT
  Age: 19 Year
  Sex: Female

DRUGS (3)
  1. INFLECTRA [INFLIXIMAB DYYB] [Concomitant]
     Indication: CROHN^S DISEASE
     Dosage: 300 MG, UNK(300 MG AT WEEK 0, AND WEEK 2)
     Route: 042
     Dates: start: 20191120
  2. PREDNISONE. [Concomitant]
     Active Substance: PREDNISONE
     Dosage: 40 MG, UNK
     Route: 065
  3. METHYLPREDNISOLONE. [Suspect]
     Active Substance: METHYLPREDNISOLONE
     Dosage: UNK
     Dates: start: 20191115, end: 20191124

REACTIONS (6)
  - Therapy non-responder [Unknown]
  - Gastrointestinal disorder [Unknown]
  - Abdominal pain [Unknown]
  - Weight decreased [Unknown]
  - Anaemia [Unknown]
  - Large intestinal ulcer [Unknown]
